FAERS Safety Report 5155183-5 (Version None)
Quarter: 2006Q4

REPORT INFORMATION
  Report Type: 
  Country: None (occurrence: None)
  Receive Date: 20061121
  Receipt Date: 20061113
  Transmission Date: 20070319
  Serious: Yes (Other)
  Sender: FDA-Public Use
  Company Number: US-JNJFOC-20061103571

PATIENT
  Sex: Female
  Weight: 114.31 kg

DRUGS (16)
  1. DURAGESIC-100 [Suspect]
     Indication: PAIN
     Route: 062
  2. ACTIQ [Concomitant]
     Indication: BREAKTHROUGH PAIN
     Dosage: UP TO 4 PER DAY AS NEEDED
     Route: 048
  3. PERCOCET [Concomitant]
     Indication: BREAKTHROUGH PAIN
     Dosage: 10/650MG AS NEEDED
     Route: 048
  4. SYNTHROID [Concomitant]
     Indication: HYPOTHYROIDISM
     Route: 048
  5. PREVACID [Concomitant]
     Indication: GASTROOESOPHAGEAL REFLUX DISEASE
     Route: 048
  6. ZOFRAN [Concomitant]
     Indication: NAUSEA
     Route: 048
  7. ZELNORM [Concomitant]
     Indication: IRRITABLE BOWEL SYNDROME
     Route: 048
  8. DITROPAN XL [Concomitant]
     Indication: BLADDER DISORDER
     Route: 048
  9. ZOLOFT [Concomitant]
     Indication: DEPRESSION
     Route: 048
  10. SINGULAIR [Concomitant]
     Indication: ASTHMA
     Route: 048
  11. FLONASE [Concomitant]
     Indication: MULTIPLE ALLERGIES
     Dosage: EACH NOSTRIL
     Route: 045
  12. ALBUTEROL [Concomitant]
     Indication: ASTHMA
     Dosage: AS NEEDED
     Route: 055
  13. LIDODERM [Concomitant]
     Indication: BACK PAIN
     Route: 062
  14. LIPITOR [Concomitant]
     Indication: BLOOD CHOLESTEROL INCREASED
     Route: 048
  15. CYMBALTA [Concomitant]
     Indication: NEURALGIA
     Route: 048
  16. ZANTAC [Concomitant]
     Indication: GASTROOESOPHAGEAL REFLUX DISEASE
     Route: 048

REACTIONS (6)
  - BLOOD PRESSURE DECREASED [None]
  - EYE ROLLING [None]
  - IMMOBILE [None]
  - LOSS OF CONSCIOUSNESS [None]
  - RESPIRATORY RATE DECREASED [None]
  - WRONG TECHNIQUE IN DRUG USAGE PROCESS [None]
